FAERS Safety Report 9685115 (Version 1)
Quarter: 2013Q4

REPORT INFORMATION
  Report Type: Spontaneous
  Country: US (occurrence: US)
  Receive Date: 20131113
  Receipt Date: 20131113
  Transmission Date: 20140711
  Serious: Yes (Hospitalization, Other)
  Sender: FDA-Public Use
  Company Number: US-AMGEN-USASP2013079513

PATIENT
  Age: 65 Year
  Sex: Female

DRUGS (1)
  1. ENBREL [Suspect]
     Indication: PSORIATIC ARTHROPATHY
     Dosage: UNK UNK, QWK
     Route: 065
     Dates: start: 20121105, end: 20131026

REACTIONS (5)
  - Dysarthria [Not Recovered/Not Resolved]
  - Balance disorder [Not Recovered/Not Resolved]
  - Kidney infection [Not Recovered/Not Resolved]
  - Scratch [Not Recovered/Not Resolved]
  - Localised infection [Recovered/Resolved]
